FAERS Safety Report 25575671 (Version 2)
Quarter: 2025Q3

REPORT INFORMATION
  Report Type: Spontaneous
  Country: US (occurrence: US)
  Receive Date: 20250718
  Receipt Date: 20250722
  Transmission Date: 20251021
  Serious: No
  Sender: LUPIN
  Company Number: US-LUPIN PHARMACEUTICALS INC.-2025-06174

PATIENT
  Age: 50 Year

DRUGS (1)
  1. TIOTROPIUM BROMIDE [Suspect]
     Active Substance: TIOTROPIUM BROMIDE
     Indication: Chronic obstructive pulmonary disease
     Dosage: 1 DOSAGE FORM, QD
     Route: 065

REACTIONS (6)
  - Wrong technique in device usage process [Unknown]
  - Device mechanical issue [Unknown]
  - Device defective [Unknown]
  - Device delivery system issue [Unknown]
  - Device breakage [Unknown]
  - No adverse event [Unknown]
